FAERS Safety Report 14029306 (Version 1)
Quarter: 2017Q3

REPORT INFORMATION
  Report Type: Spontaneous
  Country: US (occurrence: US)
  Receive Date: 20170930
  Receipt Date: 20170930
  Transmission Date: 20171128
  Serious: No
  Sender: FDA-Public Use
  Company Number: US-SA-2017SA088176

PATIENT
  Age: 67 Year
  Sex: Female

DRUGS (12)
  1. CLONAZEPAM. [Concomitant]
     Active Substance: CLONAZEPAM
  2. TIZANIDINE. [Concomitant]
     Active Substance: TIZANIDINE
  3. SERTRALINE [Concomitant]
     Active Substance: SERTRALINE HYDROCHLORIDE
  4. DEXAMETHASONE. [Concomitant]
     Active Substance: DEXAMETHASONE
  5. BENZONATATE. [Concomitant]
     Active Substance: BENZONATATE
  6. METOPROLOL. [Concomitant]
     Active Substance: METOPROLOL
  7. AUBAGIO [Suspect]
     Active Substance: TERIFLUNOMIDE
     Indication: MULTIPLE SCLEROSIS
     Route: 048
     Dates: start: 201704
  8. GABAPENTIN. [Concomitant]
     Active Substance: GABAPENTIN
  9. MYRBETRIQ [Concomitant]
     Active Substance: MIRABEGRON
  10. OXYBUTYNIN [Concomitant]
     Active Substance: OXYBUTYNIN
  11. CLARITHROMYCIN. [Concomitant]
     Active Substance: CLARITHROMYCIN
  12. TRAZODONE [Concomitant]
     Active Substance: TRAZODONE HYDROCHLORIDE

REACTIONS (4)
  - Headache [Not Recovered/Not Resolved]
  - Balance disorder [Not Recovered/Not Resolved]
  - Onychoclasis [Not Recovered/Not Resolved]
  - Fatigue [Not Recovered/Not Resolved]
